FAERS Safety Report 10327538 (Version 2)
Quarter: 2014Q3

REPORT INFORMATION
  Report Type: Spontaneous
  Country: GB (occurrence: GB)
  Receive Date: 20140721
  Receipt Date: 20140812
  Transmission Date: 20150326
  Serious: Yes (Hospitalization, Other)
  Sender: FDA-Public Use
  Company Number: GB-DRREDDYS-GER/UKI/14/0041772

PATIENT
  Sex: Female

DRUGS (4)
  1. AUDEN MCKENZIE CLONAZEPAM [Suspect]
     Active Substance: CLONAZEPAM
     Indication: BIPOLAR DISORDER
     Route: 048
  2. RISPERIDONE. [Suspect]
     Active Substance: RISPERIDONE
     Indication: PRODUCT USED FOR UNKNOWN INDICATION
  3. ABILIFY [Suspect]
     Active Substance: ARIPIPRAZOLE
     Indication: PRODUCT USED FOR UNKNOWN INDICATION
  4. SODIUM VALPROATE [Suspect]
     Active Substance: VALPROATE SODIUM
     Indication: PRODUCT USED FOR UNKNOWN INDICATION

REACTIONS (11)
  - Hallucination [Unknown]
  - Abnormal behaviour [None]
  - Muscle spasms [Unknown]
  - Crying [None]
  - Anger [None]
  - Psychotic disorder [Not Recovered/Not Resolved]
  - Delusion [Unknown]
  - Mania [Not Recovered/Not Resolved]
  - Off label use [Unknown]
  - Drug withdrawal syndrome [Unknown]
  - Palpitations [Unknown]
